FAERS Safety Report 19847341 (Version 1)
Quarter: 2021Q3

REPORT INFORMATION
  Report Type: Spontaneous
  Country: DE (occurrence: DE)
  Receive Date: 20210917
  Receipt Date: 20210917
  Transmission Date: 20211014
  Serious: Yes (Death, Congenital Anomaly, Other)
  Sender: FDA-Public Use
  Company Number: DE-MYLANLABS-2021M1062286

PATIENT
  Sex: Male

DRUGS (1)
  1. OLMESARTAN MEDOXOMIL. [Suspect]
     Active Substance: OLMESARTAN MEDOXOMIL
     Indication: PRODUCT USED FOR UNKNOWN INDICATION
     Dosage: 20 MILLIGRAM, QD (20 MG, DAILY)
     Route: 064

REACTIONS (6)
  - Joint contracture [Unknown]
  - Renal vein thrombosis [Unknown]
  - Microcephaly [Unknown]
  - Foetal death [Fatal]
  - Foetal exposure during pregnancy [Fatal]
  - Vena cava thrombosis [Unknown]
